FAERS Safety Report 5301573-7 (Version None)
Quarter: 2007Q2

REPORT INFORMATION
  Report Type: 
  Country: None (occurrence: None)
  Receive Date: 20070412
  Receipt Date: 20070403
  Transmission Date: 20071010
  Serious: Yes (Hospitalization, Other)
  Sender: FDA-Public Use
  Company Number: 07H-020-0312332-00

PATIENT
  Age: 45 Year
  Sex: Female

DRUGS (2)
  1. DOBUTAMINE HCL [Suspect]
     Indication: STRESS ECHOCARDIOGRAM
     Dosage: 5 MCG/KG/MIN, INC TO 10, 20, 30 MCG/KG/MIN EVERY 3 MIN, INTRAVENOUS INFUSION
     Route: 042
  2. ATROPINE [Concomitant]

REACTIONS (8)
  - ARTERIOGRAM CORONARY ABNORMAL [None]
  - ARTERIOSPASM CORONARY [None]
  - CORONARY ARTERY DISEASE [None]
  - ECHOCARDIOGRAM ABNORMAL [None]
  - ELECTROCARDIOGRAM ST SEGMENT DEPRESSION [None]
  - ELECTROCARDIOGRAM ST SEGMENT ELEVATION [None]
  - VENTRICULAR EXTRASYSTOLES [None]
  - VENTRICULAR TACHYCARDIA [None]
